FAERS Safety Report 8772565 (Version 2)
Quarter: 2012Q4

REPORT INFORMATION
  Report Type: 
  Country: US (occurrence: US)
  Receive Date: 20120905
  Receipt Date: 20121219
  Transmission Date: 20130627
  Serious: Yes (Hospitalization)
  Sender: FDA-Public Use
  Company Number: US-ASTRAZENECA-2012SE65117

PATIENT
  Age: 57 Year
  Sex: Female

DRUGS (5)
  1. NEXIUM [Suspect]
     Indication: GASTROOESOPHAGEAL REFLUX DISEASE
     Route: 048
  2. NEXIUM IV [Suspect]
     Route: 042
  3. OMEPRAZOLE [Suspect]
     Route: 048
  4. PROPANOLOL [Concomitant]
     Indication: HYPERTENSION
  5. VITAMIN D [Concomitant]
     Dosage: OTC

REACTIONS (4)
  - Nausea [Unknown]
  - Weight decreased [Unknown]
  - Scratch [Unknown]
  - Drug effect decreased [Unknown]
